FAERS Safety Report 4632807-X (Version None)
Quarter: 2005Q2

REPORT INFORMATION
  Report Type: 
  Country: None (occurrence: None)
  Receive Date: 20050412
  Receipt Date: 20050329
  Transmission Date: 20051028
  Serious: Yes (Hospitalization)
  Sender: FDA-Public Use
  Company Number: 200510966JP

PATIENT
  Age: 57 Year
  Sex: Male

DRUGS (6)
  1. KETEK [Suspect]
     Dosage: DOSE: 2 TABLETS X 1
     Route: 048
  2. THEO-DUR [Concomitant]
     Dosage: DOSE: 2 MG 2 TABLETS X 2
     Route: 048
     Dates: start: 20050322, end: 20050325
  3. HOKUNALIN [Concomitant]
     Route: 048
     Dates: start: 20050322, end: 20050325
  4. PL GRAN. [Concomitant]
     Route: 048
     Dates: start: 20050322, end: 20050325
  5. SAWATENE [Concomitant]
     Dosage: DOSE: 250 MG 3 TABELTS X 3
     Route: 048
     Dates: start: 20050322, end: 20050325
  6. MEDICON [Concomitant]
     Dosage: DOSE: 6 TABLETS X 3
     Route: 048
     Dates: start: 20050322, end: 20050325

REACTIONS (2)
  - FEELING ABNORMAL [None]
  - PERSONALITY DISORDER [None]
